FAERS Safety Report 5954794-4 (Version None)
Quarter: 2008Q4

REPORT INFORMATION
  Report Type: 
  Country: None (occurrence: None)
  Receive Date: 20081117
  Receipt Date: 20081103
  Transmission Date: 20090506
  Serious: Yes (Hospitalization, Other)
  Sender: FDA-Public Use
  Company Number: US-AVENTIS-200817709US

PATIENT
  Sex: Female
  Weight: 69.85 kg

DRUGS (13)
  1. KETEK [Suspect]
     Dosage: DOSE: UNK
     Dates: start: 20050308
  2. HERBAL PREPARATION [Suspect]
     Dosage: DOSE: UNK
     Dates: start: 20050101, end: 20050101
  3. GNC SUPPLEMENT [Suspect]
     Dosage: DOSE: UNK
     Dates: start: 20050401, end: 20050101
  4. GUAIFENESIN W/DEXTROMETHOR.HBR/PSEUDOEPHEDR. [Concomitant]
     Dosage: DOSE: UNK
     Dates: start: 20050308
  5. ALLERGY SHOTS [Concomitant]
     Dosage: DOSE: UNK
  6. ACIPHEX [Concomitant]
     Dosage: DOSE: UNK
     Dates: start: 20041001, end: 20050510
  7. ACIPHEX [Concomitant]
     Dosage: DOSE: UNK
  8. ALLEGRA [Concomitant]
     Dosage: DOSE: UNK
     Dates: start: 20040901, end: 20050510
  9. ALLEGRA [Concomitant]
     Dosage: DOSE: UNK
  10. SINGULAIR [Concomitant]
     Dosage: DOSE: UNK
     Dates: start: 20040901, end: 20050510
  11. FLONASE [Concomitant]
     Dosage: DOSE: UNK
     Dates: start: 20040901, end: 20050510
  12. ACETAMINOPHEN [Concomitant]
     Dosage: DOSE: USES RARELY
  13. ALEVE [Concomitant]
     Indication: PREMENSTRUAL SYNDROME
     Dosage: DOSE: 2-3 DAYS PER MONTH

REACTIONS (27)
  - ABDOMINAL PAIN UPPER [None]
  - ACUTE HEPATIC FAILURE [None]
  - ANTINUCLEAR ANTIBODY POSITIVE [None]
  - ASCITES [None]
  - CHROMATURIA [None]
  - DECREASED APPETITE [None]
  - DERMATITIS ACNEIFORM [None]
  - FATIGUE [None]
  - HEPATIC CIRRHOSIS [None]
  - HEPATOMEGALY [None]
  - HYPOCALCAEMIA [None]
  - JAUNDICE [None]
  - LIVER DISORDER [None]
  - LIVER FUNCTION TEST ABNORMAL [None]
  - LIVER TRANSPLANT REJECTION [None]
  - NAUSEA [None]
  - NEPHROPATHY TOXIC [None]
  - NEUROTOXICITY [None]
  - OCULAR ICTERUS [None]
  - OEDEMA PERIPHERAL [None]
  - POST PROCEDURAL COMPLICATION [None]
  - PROTHROMBIN TIME PROLONGED [None]
  - PYREXIA [None]
  - THROMBOCYTHAEMIA [None]
  - TREMOR [None]
  - URINARY TRACT INFECTION [None]
  - VOMITING [None]
